FAERS Safety Report 18455526 (Version 1)
Quarter: 2020Q4

REPORT INFORMATION
  Report Type: Spontaneous
  Country: US (occurrence: US)
  Receive Date: 20201103
  Receipt Date: 20201103
  Transmission Date: 20210114
  Serious: No
  Sender: FDA-Public Use
  Company Number: US-BAUSCH-BL-2020-030063

PATIENT
  Age: 49 Year
  Sex: Female
  Weight: 90.8 kg

DRUGS (2)
  1. LISINOPRIL. [Concomitant]
     Active Substance: LISINOPRIL
     Indication: PRODUCT USED FOR UNKNOWN INDICATION
     Route: 048
  2. LUMIFY [Suspect]
     Active Substance: BRIMONIDINE TARTRATE
     Indication: OCULAR HYPERAEMIA
     Dosage: ONE DROP IN EACH EYE, AS NEEDED
     Route: 047
     Dates: start: 202010, end: 20201012

REACTIONS (2)
  - Vision blurred [Recovering/Resolving]
  - Dry eye [Recovered/Resolved]

NARRATIVE: CASE EVENT DATE: 202010
